FAERS Safety Report 5171126-2 (Version None)
Quarter: 2006Q4

REPORT INFORMATION
  Report Type: 
  Country: None (occurrence: None)
  Receive Date: 20061206
  Receipt Date: 20061206
  Transmission Date: 20070319
  Serious: No
  Sender: FDA-Public Use
  Company Number: None

PATIENT

DRUGS (2)
  1. KETEK [Suspect]
     Dosage: TABLET
  2. KALETRA [Suspect]
     Dosage: TABLET

REACTIONS (6)
  - DISEASE PROGRESSION [None]
  - DRUG DISPENSING ERROR [None]
  - HEPATOCELLULAR DAMAGE [None]
  - MEDICATION ERROR [None]
  - SKIN DISCOLOURATION [None]
  - WRONG DRUG ADMINISTERED [None]
